FAERS Safety Report 23859329 (Version 2)
Quarter: 2024Q3

REPORT INFORMATION
  Report Type: Report from Study
  Country: US (occurrence: US)
  Receive Date: 20240515
  Receipt Date: 20240708
  Transmission Date: 20241016
  Serious: Yes (Hospitalization, Other)
  Sender: TAIHO ONCOLOGY INC
  Company Number: US-TAIHOP-2024-004802

PATIENT
  Sex: Female

DRUGS (1)
  1. LONSURF [Suspect]
     Active Substance: TIPIRACIL HYDROCHLORIDE\TRIFLURIDINE
     Indication: Rectal cancer
     Dosage: CYCLE UNKNOWN
     Route: 048
     Dates: start: 20240410

REACTIONS (11)
  - Neuropathy peripheral [Unknown]
  - Pain in extremity [Unknown]
  - Cervical spinal stenosis [Unknown]
  - Back pain [Unknown]
  - Chest pain [Unknown]
  - Brain fog [Unknown]
  - Fatigue [Unknown]
  - Diarrhoea [Unknown]
  - Inappropriate schedule of product administration [Unknown]
  - Product communication issue [Unknown]
  - Disease progression [Unknown]
